FAERS Safety Report 8409926-5 (Version None)
Quarter: 2012Q2

REPORT INFORMATION
  Report Type: 
  Country: None (occurrence: None)
  Receive Date: 20120605
  Receipt Date: 20120524
  Transmission Date: 20120825
  Serious: Yes (Hospitalization)
  Sender: FDA-Public Use
  Company Number: JP-BRISTOL-MYERS SQUIBB COMPANY-16640021

PATIENT

DRUGS (4)
  1. ATELEC [Suspect]
  2. ENALAPRIL MALEATE [Suspect]
  3. FLUCONAZOLE [Suspect]
     Indication: FUNGAL INFECTION
  4. AVAPRO [Suspect]
     Route: 048

REACTIONS (1)
  - TUBULOINTERSTITIAL NEPHRITIS [None]
